FAERS Safety Report 10090138 (Version 2)
Quarter: 2014Q2

REPORT INFORMATION
  Report Type: Spontaneous
  Country: US (occurrence: US)
  Receive Date: 20140421
  Receipt Date: 20140509
  Transmission Date: 20141212
  Serious: Yes (Hospitalization)
  Sender: FDA-Public Use
  Company Number: US-BAYER-2014-055450

PATIENT
  Age: 32 Year
  Sex: Female

DRUGS (3)
  1. YASMIN [Suspect]
  2. MOTRIN [Concomitant]
     Indication: PAIN
  3. MOTRIN [Concomitant]
     Indication: PAIN

REACTIONS (3)
  - Pulmonary embolism [None]
  - Embolism venous [None]
  - Deep vein thrombosis [Not Recovered/Not Resolved]
